FAERS Safety Report 21338490 (Version 3)
Quarter: 2022Q4

REPORT INFORMATION
  Report Type: Report from Study
  Country: CL (occurrence: CL)
  Receive Date: 20220915
  Receipt Date: 20221201
  Transmission Date: 20230113
  Serious: Yes (Hospitalization, Other)
  Sender: FDA-Public Use
  Company Number: CL-BRISTOL-MYERS SQUIBB COMPANY-2022-103502

PATIENT
  Age: 35 Year
  Sex: Female
  Weight: 64 kg

DRUGS (7)
  1. NIVOLUMAB [Suspect]
     Active Substance: NIVOLUMAB
     Indication: Triple negative breast cancer
     Dosage: THE MOST RECENT DOSE RECEIVED ON 25-MAY-2022?DOSE DELAYED
     Route: 042
     Dates: start: 20220222
  2. ACETAMINOPHEN [Concomitant]
     Active Substance: ACETAMINOPHEN
     Indication: Product used for unknown indication
     Dosage: 1 UNIT NOS
     Route: 048
     Dates: start: 202108
  3. ONDANSETRON [Concomitant]
     Active Substance: ONDANSETRON
     Indication: Vomiting
     Route: 048
     Dates: start: 20220607
  4. ONDANSETRON [Concomitant]
     Active Substance: ONDANSETRON
     Route: 048
     Dates: start: 20220617
  5. OMEPRAZOLE [Concomitant]
     Active Substance: OMEPRAZOLE
     Indication: Portal hypertensive gastropathy
     Route: 048
     Dates: start: 20220616
  6. TRAMADOL [Concomitant]
     Active Substance: TRAMADOL
     Indication: Product used for unknown indication
     Dosage: 1 UNIT NOS
     Route: 048
     Dates: start: 202108
  7. DOMPERIDONE [Concomitant]
     Active Substance: DOMPERIDONE
     Indication: Vomiting
     Route: 048
     Dates: start: 20220617, end: 20220830

REACTIONS (1)
  - Gastric haemorrhage [Recovered/Resolved]

NARRATIVE: CASE EVENT DATE: 20220907
